FAERS Safety Report 8956656 (Version 2)
Quarter: 2013Q1

REPORT INFORMATION
  Report Type: Spontaneous
  Country: US (occurrence: US)
  Receive Date: 20121210
  Receipt Date: 20130110
  Transmission Date: 20140127
  Serious: Yes (Other)
  Sender: FDA-Public Use
  Company Number: US-JNJFOC-20121113906

PATIENT
  Age: 54 None
  Sex: Female
  Weight: 82.56 kg

DRUGS (7)
  1. SIMPONI [Suspect]
     Indication: RHEUMATOID ARTHRITIS
     Dosage: STARTED 6 YEARS AGO OR LONGER
     Route: 058
  2. SIMPONI [Suspect]
     Indication: RHEUMATOID ARTHRITIS
     Route: 058
  3. METHOTREXATE [Suspect]
     Indication: RHEUMATOID ARTHRITIS
     Route: 065
  4. UNKNOWN MEDICATION [Suspect]
     Indication: PRODUCT USED FOR UNKNOWN INDICATION
     Route: 065
  5. FOLIC ACID [Concomitant]
     Route: 048
  6. SAVELLA [Concomitant]
     Indication: FIBROMYALGIA
     Route: 048
  7. HUMIRA [Concomitant]
     Indication: RHEUMATOID ARTHRITIS
     Route: 065

REACTIONS (6)
  - Endoscopy abnormal [Not Recovered/Not Resolved]
  - Impaired gastric emptying [Unknown]
  - Nausea [Not Recovered/Not Resolved]
  - Visual impairment [Not Recovered/Not Resolved]
  - Device malfunction [Not Recovered/Not Resolved]
  - Drug dose omission [Not Recovered/Not Resolved]
